FAERS Safety Report 6399425-7 (Version None)
Quarter: 2009Q4

REPORT INFORMATION
  Report Type: 
  Country: None (occurrence: None)
  Receive Date: 20091014
  Receipt Date: 20090930
  Transmission Date: 20100525
  Serious: Yes (Other)
  Sender: FDA-Public Use
  Company Number: PHEH2009US12543

PATIENT
  Sex: Female

DRUGS (1)
  1. EXJADE [Suspect]
     Dosage: 1000 MG DAILY
     Route: 048
     Dates: start: 20081120

REACTIONS (4)
  - ABDOMINAL PAIN [None]
  - BOWEL MOVEMENT IRREGULARITY [None]
  - DIARRHOEA [None]
  - INTESTINAL FUNCTIONAL DISORDER [None]
